FAERS Safety Report 14351042 (Version 1)
Quarter: 2018Q1

REPORT INFORMATION
  Report Type: Spontaneous
  Country: US (occurrence: US)
  Receive Date: 20180103
  Receipt Date: 20180103
  Transmission Date: 20180509
  Serious: No
  Sender: FDA-Public Use
  Company Number: None

PATIENT
  Age: 59 Year
  Sex: Female

DRUGS (1)
  1. HUMIRA [Suspect]
     Active Substance: ADALIMUMAB
     Indication: IRIDOCYCLITIS
     Route: 058
     Dates: start: 20171108

REACTIONS (5)
  - Fatigue [None]
  - Chills [None]
  - Pyrexia [None]
  - Cough [None]
  - Myalgia [None]

NARRATIVE: CASE EVENT DATE: 20171229
